FAERS Safety Report 4772215-4 (Version None)
Quarter: 2005Q3

REPORT INFORMATION
  Report Type: 
  Country: None (occurrence: None)
  Receive Date: 20050919
  Receipt Date: 20050126
  Transmission Date: 20060218
  Serious: No
  Sender: FDA-Public Use
  Company Number: US-BRISTOL-MYERS SQUIBB COMPANY-12839650

PATIENT
  Age: 48 Year
  Sex: Female

DRUGS (1)
  1. DEFINITY [Suspect]
     Indication: CHEST PAIN
     Dates: start: 20050126, end: 20050126

REACTIONS (1)
  - FLANK PAIN [None]
